FAERS Safety Report 5913706-X (Version None)
Quarter: 2008Q3

REPORT INFORMATION
  Report Type: 
  Country: None (occurrence: None)
  Receive Date: 20080909
  Receipt Date: 20080205
  Transmission Date: 20090109
  Serious: Yes (Death)
  Sender: FDA-Public Use
  Company Number: 163-20785-07081339

PATIENT
  Age: 55 Year
  Sex: Male

DRUGS (2)
  1. THALOMID [Suspect]
     Indication: MULTIPLE MYELOMA
     Dosage: 100 MG, 1 IN 1 D, ORAL ; ORAL
     Route: 047
     Dates: start: 20070716, end: 20070812
  2. THALOMID [Suspect]
     Indication: MULTIPLE MYELOMA
     Dosage: 100 MG, 1 IN 1 D, ORAL ; ORAL
     Route: 047
     Dates: start: 20000101

REACTIONS (4)
  - HYPOAESTHESIA [None]
  - MULTIPLE MYELOMA [None]
  - PARAESTHESIA [None]
  - SEPSIS [None]
